FAERS Safety Report 6278642-0 (Version None)
Quarter: 2009Q3

REPORT INFORMATION
  Report Type: 
  Country: None (occurrence: None)
  Receive Date: 20090722
  Receipt Date: 20090505
  Transmission Date: 20100115
  Serious: No
  Sender: FDA-Public Use
  Company Number: US-BAUSCH-2009BL002120

PATIENT
  Age: 49 Year
  Sex: Female

DRUGS (3)
  1. OPCON-A [Suspect]
     Indication: SEASONAL ALLERGY
     Route: 047
     Dates: start: 20090502, end: 20090502
  2. OPCON-A [Suspect]
     Indication: EYE PRURITUS
     Route: 047
     Dates: start: 20090502, end: 20090502
  3. EQUATE ARTIFICIAL TEARS [Concomitant]
     Indication: DRY EYE
     Route: 047

REACTIONS (2)
  - EYE IRRITATION [None]
  - EYE PAIN [None]
